FAERS Safety Report 9897856 (Version 1)
Quarter: 2014Q1

REPORT INFORMATION
  Report Type: Spontaneous
  Country: US (occurrence: US)
  Receive Date: 20140214
  Receipt Date: 20140214
  Transmission Date: 20141002
  Serious: No
  Sender: FDA-Public Use
  Company Number: US-PFIZER INC-2014037285

PATIENT
  Sex: Female

DRUGS (3)
  1. EFFEXOR XR [Suspect]
     Indication: ANXIETY
     Dosage: 37.5 MG, 1X/DAY
     Route: 048
     Dates: start: 20140130, end: 20140130
  2. EFFEXOR XR [Suspect]
     Dosage: NEW VENLAFAXINE 37.5MG IN THE MORNING AND EXPIRED 37.5MG AT NIGHT
     Route: 048
     Dates: start: 20140201
  3. VENLAFAXINE HCL [Suspect]
     Indication: ANXIETY
     Dosage: UNK
     Route: 048
     Dates: start: 20140131, end: 20140131

REACTIONS (9)
  - Expired drug administered [Unknown]
  - Intentional drug misuse [Unknown]
  - Somnolence [Unknown]
  - Psychomotor hyperactivity [Unknown]
  - Depressed mood [Unknown]
  - Insomnia [Unknown]
  - Burning sensation [Unknown]
  - Drug ineffective [Unknown]
  - Anxiety [Unknown]
